FAERS Safety Report 24669814 (Version 3)
Quarter: 2024Q4

REPORT INFORMATION
  Report Type: Spontaneous
  Country: US (occurrence: US)
  Receive Date: 20241127
  Receipt Date: 20241220
  Transmission Date: 20250114
  Serious: No
  Sender: VERTEX
  Company Number: US-VERTEX PHARMACEUTICALS-2024-018340

PATIENT
  Age: 25 Year
  Sex: Female

DRUGS (2)
  1. TRIKAFTA [Suspect]
     Active Substance: ELEXACAFTOR\IVACAFTOR\TEZACAFTOR
     Indication: Cystic fibrosis
     Dosage: UNK
     Route: 048
  2. TOBI [Concomitant]
     Active Substance: TOBRAMYCIN
     Indication: Bacterial disease carrier
     Dosage: EVERY OTHER MONTH

REACTIONS (3)
  - Menstrual disorder [Unknown]
  - Feeling abnormal [Unknown]
  - Alcohol intolerance [Unknown]
